FAERS Safety Report 4335375-5 (Version None)
Quarter: 2004Q2

REPORT INFORMATION
  Report Type: 
  Country: None (occurrence: None)
  Receive Date: 20040408
  Receipt Date: 20040408
  Transmission Date: 20050107
  Serious: Yes (Life-Threatening, Hospitalization)
  Sender: FDA-Public Use
  Company Number: None

PATIENT
  Age: 20 Year
  Sex: Female

DRUGS (3)
  1. VENLAFAXINE [Suspect]
     Indication: SUICIDE ATTEMPT
  2. QUETIAPINE [Suspect]
  3. CLONAZEPAM [Concomitant]

REACTIONS (7)
  - HYPOGLYCAEMIA [None]
  - HYPOTENSION [None]
  - LETHARGY [None]
  - OVERDOSE [None]
  - RESPIRATORY RATE INCREASED [None]
  - STRESS SYMPTOMS [None]
  - TACHYCARDIA [None]
